FAERS Safety Report 25143688 (Version 1)
Quarter: 2025Q2

REPORT INFORMATION
  Report Type: Report from Study
  Country: US (occurrence: US)
  Receive Date: 20250401
  Receipt Date: 20250401
  Transmission Date: 20250716
  Serious: Yes (Other)
  Sender: ALEXION PHARMACEUTICALS
  Company Number: US-AstraZeneca-CH-00835304A

PATIENT

DRUGS (1)
  1. FASENRA [Suspect]
     Active Substance: BENRALIZUMAB
     Route: 065

REACTIONS (9)
  - Dyspnoea [Unknown]
  - Terminal insomnia [Unknown]
  - Sinusitis [Unknown]
  - Oropharyngeal discomfort [Unknown]
  - Headache [Unknown]
  - Device use issue [Unknown]
  - Sleep apnoea syndrome [Unknown]
  - Dyspnoea [Unknown]
  - Bronchiectasis [Unknown]
